FAERS Safety Report 8179266-0 (Version None)
Quarter: 2012Q1

REPORT INFORMATION
  Report Type: 
  Country: None (occurrence: None)
  Receive Date: 20120229
  Receipt Date: 20120217
  Transmission Date: 20120608
  Serious: Yes (Disabling)
  Sender: FDA-Public Use
  Company Number: 2012SP009311

PATIENT
  Age: 54 Year
  Sex: Female

DRUGS (6)
  1. RIBAVIRIN [Suspect]
     Indication: HEPATITIS C
  2. INSULIN [Concomitant]
  3. VICTRELIS [Suspect]
     Indication: HEPATITIS C
     Dosage: 800 MG;TID;PO
     Route: 048
     Dates: start: 20110901
  4. DEXILANT [Concomitant]
  5. PEGASYS [Suspect]
     Indication: HEPATITIS C
  6. PROCRIT [Concomitant]

REACTIONS (3)
  - COGNITIVE DISORDER [None]
  - ANAEMIA [None]
  - MEMORY IMPAIRMENT [None]
